FAERS Safety Report 24721889 (Version 1)
Quarter: 2024Q4

REPORT INFORMATION
  Report Type: Spontaneous
  Country: US (occurrence: US)
  Receive Date: 20241211
  Receipt Date: 20241211
  Transmission Date: 20250115
  Serious: No
  Sender: GLAND PHARMA LTD
  Company Number: US-GLANDPHARMA-US-2024GLNSPO01150

PATIENT
  Sex: Female

DRUGS (1)
  1. DOXORUBICIN HYDROCHLORIDE [Suspect]
     Active Substance: DOXORUBICIN HYDROCHLORIDE
     Indication: Chemotherapy
     Route: 065

REACTIONS (3)
  - Fatigue [Unknown]
  - White blood cell count decreased [Unknown]
  - Decreased appetite [Unknown]
